FAERS Safety Report 10626523 (Version 2)
Quarter: 2014Q4

REPORT INFORMATION
  Report Type: Spontaneous
  Country: EG (occurrence: EG)
  Receive Date: 20141204
  Receipt Date: 20141204
  Transmission Date: 20150529
  Serious: Yes (Death)
  Sender: FDA-Public Use
  Company Number: EG-PFIZER INC.-2014302711

PATIENT
  Sex: Male

DRUGS (1)
  1. SUTENT [Suspect]
     Active Substance: SUNITINIB MALATE
     Indication: BONE CANCER
     Dosage: ONCE DAILY FOR ONE WEEK, THEN STOP FOR 1 WEEK, AND REPEAT
     Route: 048
     Dates: start: 20140914

REACTIONS (4)
  - Oropharyngeal pain [Unknown]
  - Off label use [Unknown]
  - Hallucination [Unknown]
  - Death [Fatal]

NARRATIVE: CASE EVENT DATE: 2014
